FAERS Safety Report 4489719-4 (Version None)
Quarter: 2004Q4

REPORT INFORMATION
  Report Type: 
  Country: None (occurrence: None)
  Receive Date: 20041101
  Receipt Date: 20041006
  Transmission Date: 20050328
  Serious: Yes (Hospitalization)
  Sender: FDA-Public Use
  Company Number: JP-MERCK-0410USA01066

PATIENT
  Age: 80 Year
  Sex: Male

DRUGS (12)
  1. SINGULAIR [Suspect]
     Route: 048
     Dates: start: 20020901, end: 20040811
  2. SLO-BID [Concomitant]
     Route: 048
  3. PULMICORT [Concomitant]
     Route: 055
     Dates: start: 20030601
  4. ATROVENT [Concomitant]
     Route: 055
  5. GASTER [Concomitant]
     Route: 048
  6. NIFEDIPINE [Concomitant]
     Route: 048
  7. ULCERLMIN [Concomitant]
     Route: 048
  8. MUCODYNE [Concomitant]
     Route: 048
  9. PANALDINE [Concomitant]
     Route: 048
  10. PREDNISOLONE [Concomitant]
     Route: 048
     Dates: end: 20040720
  11. PREDNISOLONE [Concomitant]
     Route: 048
     Dates: start: 20040721
  12. PREDNISOLONE [Concomitant]
     Route: 048

REACTIONS (5)
  - ALLERGIC GRANULOMATOUS ANGIITIS [None]
  - ARTHRALGIA [None]
  - PLEURAL EFFUSION [None]
  - PYREXIA [None]
  - WHEEZING [None]
